FAERS Safety Report 17713609 (Version 1)
Quarter: 2020Q2

REPORT INFORMATION
  Report Type: Spontaneous
  Country: US (occurrence: US)
  Receive Date: 20200427
  Receipt Date: 20200427
  Transmission Date: 20200714
  Serious: No
  Sender: FDA-Public Use
  Company Number: US-ROCHE-2540811

PATIENT
  Age: 20 Year
  Sex: Male
  Weight: 79.9 kg

DRUGS (2)
  1. CHERATUSSIN [Concomitant]
     Active Substance: AMMONIUM CHLORIDE\DEXTROMETHORPHAN\SODIUM CITRATE
     Indication: COUGH
     Route: 048
     Dates: start: 20200127
  2. XOFLUZA [Suspect]
     Active Substance: BALOXAVIR MARBOXIL
     Indication: INFLUENZA
     Dosage: TWO 40 MG TABLETS TAKEN AT THE SAME TIME; ONGOING: NO
     Route: 048
     Dates: start: 20200127, end: 20200127

REACTIONS (2)
  - Groin pain [Not Recovered/Not Resolved]
  - Flank pain [Not Recovered/Not Resolved]

NARRATIVE: CASE EVENT DATE: 20200127
